FAERS Safety Report 19123326 (Version 1)
Quarter: 2021Q2

REPORT INFORMATION
  Report Type: Spontaneous
  Country: US (occurrence: US)
  Receive Date: 20210412
  Receipt Date: 20210412
  Transmission Date: 20210717
  Serious: No
  Sender: FDA-Public Use
  Company Number: US-TAKEDA-2021TUS022557

PATIENT
  Sex: Male
  Weight: 29 kg

DRUGS (1)
  1. GAMMAGARD LIQUID [Suspect]
     Active Substance: HUMAN IMMUNOGLOBULIN G
     Indication: GASTROINTESTINAL BACTERIAL OVERGROWTH
     Dosage: 1 GRAM PER KILOGRAM, EVERY 6 WEEKS
     Route: 065

REACTIONS (2)
  - Headache [Recovering/Resolving]
  - Off label use [Unknown]
